FAERS Safety Report 25331945 (Version 1)
Quarter: 2025Q2

REPORT INFORMATION
  Report Type: Other
  Country: BG (occurrence: BG)
  Receive Date: 20250519
  Receipt Date: 20250519
  Transmission Date: 20250717
  Serious: Yes (Life-Threatening, Hospitalization, Other)
  Sender: LGM PHARMA SOLUTIONS, LLC
  Company Number: BG-LGM Pharma Solutions, LLC-2176950

PATIENT
  Age: 74 Year
  Sex: Female

DRUGS (1)
  1. LEVOTHYROXINE [Suspect]
     Active Substance: LEVOTHYROXINE
     Indication: Autoimmune thyroiditis

REACTIONS (7)
  - B-cell lymphoma [Unknown]
  - Metastases to ovary [Unknown]
  - B-cell lymphoma [Unknown]
  - Lymphadenitis [Unknown]
  - Small intestinal resection [Unknown]
  - Small intestinal obstruction [Unknown]
  - Constipation [Unknown]
